FAERS Safety Report 8883124 (Version 1)
Quarter: 2012Q4

REPORT INFORMATION
  Report Type: 
  Country: FR (occurrence: FR)
  Receive Date: 20121102
  Receipt Date: 20121102
  Transmission Date: 20130627
  Serious: Yes (Death, Hospitalization)
  Sender: FDA-Public Use
  Company Number: PHHO2012FR015363

PATIENT
  Age: 76 Year
  Sex: Male

DRUGS (3)
  1. RAD 666 / RAD 001A [Suspect]
     Indication: RENAL TRANSPLANT
     Dosage: 4 mg, QD
     Route: 002
     Dates: start: 20110531
  2. CORTANCYL [Concomitant]
     Indication: TRANSPLANT REJECTION
     Dosage: 10 mg, QD
     Route: 002
     Dates: start: 20110526
  3. CELLCEPT [Concomitant]
     Indication: TRANSPLANT REJECTION
     Dosage: 2 g, QD
     Route: 002
     Dates: start: 20120526, end: 20111026

REACTIONS (9)
  - Respiratory failure [Recovered/Resolved]
  - Pneumonia [Fatal]
  - Pleurisy [Unknown]
  - Transplant abscess [Recovered/Resolved]
  - Escherichia infection [Recovered/Resolved]
  - Pneumocystis jiroveci pneumonia [Recovered/Resolved]
  - Lung abscess [Unknown]
  - Cachexia [Fatal]
  - Pneumonia aspiration [Unknown]
